FAERS Safety Report 5052520-7 (Version None)
Quarter: 2006Q3

REPORT INFORMATION
  Report Type: 
  Country: None (occurrence: None)
  Receive Date: 20060717
  Receipt Date: 20060613
  Transmission Date: 20061208
  Serious: Yes (Disabling)
  Sender: FDA-Public Use
  Company Number: PHNU2006DE02302

PATIENT
  Sex: Female

DRUGS (3)
  1. COMBIPATCH [Suspect]
     Indication: OSTEOPOROSIS
     Dosage: 2 DF, QW
     Route: 062
     Dates: start: 20060517
  2. L-THYROXINE [Concomitant]
     Indication: HYPOTHYROIDISM
     Dosage: 100MG/DAY
     Dates: start: 20040101
  3. SINUSITIS N [Concomitant]

REACTIONS (6)
  - APPLICATION SITE IRRITATION [None]
  - APPLICATION SITE PRURITUS [None]
  - HEADACHE [None]
  - MALAISE [None]
  - PHARMACEUTICAL PRODUCT COMPLAINT [None]
  - POISONING [None]
